FAERS Safety Report 25689201 (Version 1)
Quarter: 2025Q3

REPORT INFORMATION
  Report Type: Spontaneous
  Country: US (occurrence: US)
  Receive Date: 20250818
  Receipt Date: 20250818
  Transmission Date: 20251020
  Serious: Yes (Other)
  Sender: DR REDDYS
  Company Number: US-DRL-USA-USA/2025/08/012174

PATIENT
  Sex: Female

DRUGS (2)
  1. SIROLIMUS [Suspect]
     Active Substance: SIROLIMUS
     Indication: Lymphatic malformation
     Route: 064
  2. SIROLIMUS [Suspect]
     Active Substance: SIROLIMUS

REACTIONS (2)
  - Foetal exposure during pregnancy [Unknown]
  - Off label use [Unknown]
